FAERS Safety Report 8370534-6 (Version None)
Quarter: 2012Q2

REPORT INFORMATION
  Report Type: 
  Country: None (occurrence: None)
  Receive Date: 20120518
  Receipt Date: 20120515
  Transmission Date: 20120825
  Serious: Yes (Death, Hospitalization)
  Sender: FDA-Public Use
  Company Number: FR-B.I. PHARMACEUTICALS,INC./RIDGEFIELD-2012-FF-00231FF

PATIENT
  Sex: Female

DRUGS (10)
  1. FUROSEMIDE [Concomitant]
     Dosage: 120 MG
     Route: 048
     Dates: start: 20110101
  2. ALPRAZOLAM [Concomitant]
     Dosage: 0.25 MG
     Route: 048
  3. POLYETHYLENE GLYCOL [Concomitant]
     Dosage: 1 TO 2 BAG PER DAY AS REQUIRED
     Route: 048
     Dates: start: 20100723
  4. ACETAMINOPHEN [Concomitant]
     Dosage: UP TO 4 TABLETS DAILY
     Route: 048
     Dates: start: 20100723
  5. NITRODERM [Concomitant]
     Dosage: 10MG/24 H
     Route: 061
  6. POTASSIUM CHLORIDE [Concomitant]
     Route: 048
     Dates: start: 20100723
  7. ATORVASTATIN [Concomitant]
     Dosage: 40 MG
     Route: 048
  8. PRADAXA [Suspect]
     Indication: ATRIAL FIBRILLATION
     Dosage: 220 MG
     Route: 048
     Dates: start: 20100726, end: 20120218
  9. LANSOYL [Concomitant]
     Route: 048
     Dates: start: 20100723
  10. NEXIUM [Concomitant]
     Route: 048
     Dates: start: 20100723

REACTIONS (5)
  - RESPIRATORY DISTRESS [None]
  - MELAENA [None]
  - ANAEMIA [None]
  - HAEMATOMA [None]
  - COLON ADENOMA [None]
